FAERS Safety Report 8056943-3 (Version None)
Quarter: 2012Q1

REPORT INFORMATION
  Report Type: 
  Country: None (occurrence: None)
  Receive Date: 20120119
  Receipt Date: 20120110
  Transmission Date: 20120608
  Serious: Yes (Hospitalization)
  Sender: FDA-Public Use
  Company Number: US-ACTELION-A-NJ2011-54838

PATIENT

DRUGS (6)
  1. ADCIRCA [Concomitant]
  2. TRACLEER [Suspect]
     Indication: PULMONARY ARTERIAL HYPERTENSION
     Dosage: UNK
     Route: 048
     Dates: start: 20080718
  3. OXYGEN [Concomitant]
  4. COUMADIN [Concomitant]
  5. CALCIUM CHANNEL BLOCKERS [Concomitant]
  6. DIGOXIN [Concomitant]

REACTIONS (6)
  - SOMNOLENCE [None]
  - CONCOMITANT DISEASE AGGRAVATED [None]
  - SYNCOPE [None]
  - DYSPNOEA [None]
  - CHEST DISCOMFORT [None]
  - CHEST PAIN [None]
